FAERS Safety Report 21722762 (Version 2)
Quarter: 2022Q4

REPORT INFORMATION
  Report Type: Spontaneous
  Country: CH (occurrence: CH)
  Receive Date: 20221213
  Receipt Date: 20221214
  Transmission Date: 20230113
  Serious: Yes (Other)
  Sender: FDA-Public Use
  Company Number: None

PATIENT
  Age: 53 Year
  Sex: Male

DRUGS (24)
  1. CRESEMBA [Suspect]
     Active Substance: ISAVUCONAZONIUM SULFATE
     Dosage: 200-600 MG DAILY
     Route: 048
     Dates: start: 20220730
  2. VORICONAZOLE [Suspect]
     Active Substance: VORICONAZOLE
     Indication: Anti-infective therapy
     Dosage: 200-600MG DAILY
     Route: 048
     Dates: start: 20220710, end: 20220720
  3. AMBISOME [Suspect]
     Active Substance: AMPHOTERICIN B
     Dosage: 400 MG (1 IN 24 HR)
     Route: 042
     Dates: start: 20220720, end: 20220730
  4. AZACITIDINE [Suspect]
     Active Substance: AZACITIDINE
     Dosage: 100 MG/M2 IN TOTAL (3RD CYCLE)
     Route: 065
     Dates: start: 20220614, end: 20220618
  5. VENETOCLAX [Suspect]
     Active Substance: VENETOCLAX
     Dosage: 100 MG (100 MG,1 IN 2 D), (100 MG (THIRD CYCLE), EVERY SECOND DAY)
     Route: 065
     Dates: start: 20220614, end: 20220706
  6. XOSPATA [Suspect]
     Active Substance: GILTERITINIB
     Dosage: 120 MG 1X/DAY (3RD CYCLE)
     Route: 065
     Dates: start: 20220614, end: 20220706
  7. GILTERITINIB [Suspect]
     Active Substance: GILTERITINIB
     Dosage: 120 MG (120 MG,1 IN 24 HR), (120 MG (THIRD CYCLE), ONCE DAILY)
     Route: 065
     Dates: start: 20220614, end: 20220706
  8. DIFLUCAN [Concomitant]
     Active Substance: FLUCONAZOLE
     Dosage: 200 MG (200 MG,1 IN 1 WK)
     Route: 048
     Dates: end: 20220710
  9. PAXLOVID [Concomitant]
     Active Substance: NIRMATRELVIR\RITONAVIR
     Indication: COVID-19 treatment
     Dosage: 1 DF, 1X/DAY
     Route: 048
     Dates: start: 20220720, end: 20220725
  10. VALACYCLOVIR HYDROCHLORIDE [Concomitant]
     Active Substance: VALACYCLOVIR HYDROCHLORIDE
     Dosage: 500 MG, 2X/DAY
     Route: 048
  11. SULFAMETHOXAZOLE\TRIMETHOPRIM [Concomitant]
     Active Substance: SULFAMETHOXAZOLE\TRIMETHOPRIM
     Dosage: 800/160 MG (3 IN 1 WK)
     Route: 048
  12. CHOLECALCIFEROL [Concomitant]
     Active Substance: CHOLECALCIFEROL
     Dosage: 1.4 ML (1.4 ML,1 IN 1 WK)
     Route: 048
  13. MAGNESIUM ASPARTATE HYDROCHLORIDE [Concomitant]
     Active Substance: MAGNESIUM ASPARTATE HYDROCHLORIDE
     Dosage: 10 MILLIMOL (10 MILLIMOL,1 IN 24 HR)
     Route: 048
  14. REMERON [Concomitant]
     Active Substance: MIRTAZAPINE
     Dosage: 15 MG (15 MG,1 IN 24 HR)
     Route: 048
     Dates: start: 20220718
  15. FOLIC ACID [Concomitant]
     Active Substance: FOLIC ACID
     Dosage: 5 MG (5 MG,1 IN 24 HR)
     Route: 048
     Dates: start: 20220812
  16. VANCOMYCIN [Concomitant]
     Active Substance: VANCOMYCIN
     Dosage: 500 MG (125 MG,1 IN 6 HR)
     Route: 048
     Dates: start: 20220729, end: 20220817
  17. VANCOMYCIN [Concomitant]
     Active Substance: VANCOMYCIN
     Dosage: 0.75-1.5 G DAILY
     Route: 042
     Dates: start: 20220711, end: 20220713
  18. VANCOMYCIN [Concomitant]
     Active Substance: VANCOMYCIN
     Dosage: 2-2.5 G DAILY
     Route: 042
     Dates: start: 20220724, end: 20220728
  19. CEFEPIME [Concomitant]
     Active Substance: CEFEPIME HYDROCHLORIDE
     Dosage: 2 GM (2 GM,1 IN 24 HR)
     Route: 042
     Dates: start: 20220711, end: 20220811
  20. FILGRASTIM [Concomitant]
     Active Substance: FILGRASTIM
     Dosage: 48 MILLION IU (24 HR)
     Route: 058
     Dates: start: 20220713, end: 20220725
  21. NALOXONE HYDROCHLORIDE\OXYCODONE HYDROCHLORIDE [Concomitant]
     Active Substance: NALOXONE HYDROCHLORIDE\OXYCODONE HYDROCHLORIDE
     Dosage: 5/2.5MG (1 IN 24 HR)
     Route: 048
     Dates: start: 20220724, end: 20220808
  22. CODEINE PHOSPHATE [Concomitant]
     Active Substance: CODEINE PHOSPHATE
     Dosage: 1 DOSAGE FORMS (1 DOSAGE FORMS,1 IN 24 HR)
     Route: 048
     Dates: start: 20220806, end: 20220813
  23. CIMETIDINE [Concomitant]
     Active Substance: CIMETIDINE
     Dosage: (800 MG)
     Route: 048
     Dates: start: 20220807, end: 20220814
  24. DAFALGAN [Concomitant]
     Active Substance: ACETAMINOPHEN
     Dosage: 500 MG (MAX 3G/DAY), 1X/DAY, RESTARTED IN PROGRESS (EXACT DATE UNKNOWN)
     Route: 048
     Dates: start: 20220713, end: 20220724

REACTIONS (3)
  - Drug-induced liver injury [Recovering/Resolving]
  - Pancytopenia [Recovering/Resolving]
  - Neutropenia [Recovering/Resolving]

NARRATIVE: CASE EVENT DATE: 20220701
